FAERS Safety Report 4912337-8 (Version None)
Quarter: 2006Q1

REPORT INFORMATION
  Report Type: 
  Country: None (occurrence: None)
  Receive Date: 20060215
  Receipt Date: 20050104
  Transmission Date: 20060701
  Serious: No
  Sender: FDA-Public Use
  Company Number: US-GLAXOSMITHKLINE-A0539297A

PATIENT
  Age: 44 Year
  Sex: Female

DRUGS (7)
  1. VALTREX [Suspect]
     Dosage: 1G PER DAY
     Route: 048
  2. IMMUNE GLOBULIN INTRAVENOUS (HUMAN) [Concomitant]
  3. FUROSEMIDE [Concomitant]
  4. POTASSIUM SUPPLEMENTS [Concomitant]
  5. ATIVAN [Concomitant]
  6. WELLBUTRIN XL [Concomitant]
     Route: 048
  7. B-12 [Concomitant]

REACTIONS (2)
  - HERPES ZOSTER [None]
  - NAUSEA [None]
